FAERS Safety Report 8884851 (Version 2)
Quarter: 2013Q3

REPORT INFORMATION
  Report Type: Spontaneous
  Country: MX (occurrence: MX)
  Receive Date: 20121102
  Receipt Date: 20130730
  Transmission Date: 20140515
  Serious: Yes (Death, Other)
  Sender: FDA-Public Use
  Company Number: MX-JNJFOC-20121014363

PATIENT
  Age: 52 Year
  Sex: Female
  Weight: 60 kg

DRUGS (14)
  1. REMICADE [Suspect]
     Indication: ANKYLOSING SPONDYLITIS
     Route: 042
     Dates: start: 20100901
  2. REMICADE [Suspect]
     Indication: ANKYLOSING SPONDYLITIS
     Route: 042
     Dates: start: 201109, end: 20120702
  3. GABAPENTIN [Concomitant]
     Indication: PAIN
     Route: 065
     Dates: start: 20100901, end: 201107
  4. DEFLAZACORT [Concomitant]
     Route: 048
  5. SULINDAC [Concomitant]
     Route: 048
  6. OMEPRAZOLE [Concomitant]
     Route: 065
  7. SUCRALFATE [Concomitant]
     Route: 048
  8. PAROXETINE [Concomitant]
     Indication: DEPRESSION
     Route: 048
     Dates: start: 20110317, end: 201202
  9. FOLIC ACID [Concomitant]
     Route: 048
  10. ACARBOSE [Concomitant]
     Route: 048
  11. DEXTROPROPOXYPHENE [Concomitant]
     Indication: PAIN
     Route: 065
     Dates: start: 20100901, end: 201107
  12. METHOTREXATE [Concomitant]
     Indication: IMMUNOSUPPRESSANT DRUG THERAPY
     Route: 065
  13. PREDNISONE [Concomitant]
     Indication: IMMUNOSUPPRESSANT DRUG THERAPY
     Route: 048
  14. CELECOXIB [Concomitant]
     Indication: INFLAMMATORY PAIN
     Route: 065
     Dates: start: 20100317, end: 201202

REACTIONS (3)
  - Hodgkin^s disease [Fatal]
  - Neutropenia [Not Recovered/Not Resolved]
  - Pneumonia [Fatal]
